FAERS Safety Report 14655246 (Version 3)
Quarter: 2018Q2

REPORT INFORMATION
  Report Type: Report from Study
  Country: BR (occurrence: BR)
  Receive Date: 20180319
  Receipt Date: 20180518
  Transmission Date: 20180711
  Serious: Yes (Hospitalization)
  Sender: FDA-Public Use
  Company Number: PHHY2018BR043333

PATIENT
  Sex: Male
  Weight: 53 kg

DRUGS (3)
  1. EXJADE [Suspect]
     Active Substance: DEFERASIROX
     Indication: IRON OVERLOAD
     Dosage: 1000 MG, QD
     Route: 048
     Dates: start: 2016
  2. FERRIPROX [Concomitant]
     Active Substance: DEFERIPRONE
     Indication: IRON OVERLOAD
     Dosage: UNK
     Route: 065
  3. EXJADE [Suspect]
     Active Substance: DEFERASIROX
     Dosage: 2 DF, QD
     Route: 048
     Dates: end: 201612

REACTIONS (5)
  - Blood iron increased [Unknown]
  - Liver iron concentration increased [Unknown]
  - Renal disorder [Unknown]
  - Blood creatinine abnormal [Unknown]
  - Liver iron concentration abnormal [Not Recovered/Not Resolved]
